FAERS Safety Report 7749407-5 (Version None)
Quarter: 2011Q3

REPORT INFORMATION
  Report Type: 
  Country: None (occurrence: None)
  Receive Date: 20110914
  Receipt Date: 20110909
  Transmission Date: 20111222
  Serious: Yes (Other)
  Sender: FDA-Public Use
  Company Number: US-PFIZER INC-2011170365

PATIENT
  Sex: Male
  Weight: 79.365 kg

DRUGS (5)
  1. GEODON [Suspect]
     Indication: BIPOLAR DISORDER
     Dosage: 160 MG, 1X/DAY
     Route: 048
     Dates: start: 20110601, end: 20110101
  2. GEODON [Suspect]
     Dosage: 160 MG, 2X/DAY
     Route: 048
     Dates: start: 20110101, end: 20110101
  3. RITALIN [Suspect]
     Dosage: 10 MG, 2X/DAY
     Route: 048
  4. GEODON [Suspect]
     Dosage: 260 MG, 1X/DAY
     Route: 048
     Dates: start: 20110101, end: 20110722
  5. RITALIN [Suspect]
     Indication: ATTENTION DEFICIT/HYPERACTIVITY DISORDER
     Dosage: 10 MG, 3X/DAY
     Route: 048

REACTIONS (10)
  - BACK PAIN [None]
  - INSOMNIA [None]
  - INCORRECT DOSE ADMINISTERED [None]
  - ANXIETY [None]
  - MUSCLE SPASMS [None]
  - DISORIENTATION [None]
  - DYSKINESIA [None]
  - CONFUSIONAL STATE [None]
  - DROOLING [None]
  - NECK PAIN [None]
